FAERS Safety Report 20660702 (Version 1)
Quarter: 2022Q1

REPORT INFORMATION
  Report Type: Other
  Country: None (occurrence: FR)
  Receive Date: 20220331
  Receipt Date: 20220331
  Transmission Date: 20220423
  Serious: No
  Sender: FDA-Public Use
  Company Number: FR-Air Products and Chemicals, Inc. -2127297

PATIENT
  Age: 60 Year
  Sex: Male

DRUGS (1)
  1. OXYGEN [Suspect]
     Active Substance: OXYGEN
     Indication: Chronic respiratory failure

REACTIONS (2)
  - Thermal burn [None]
  - Obstructive airways disorder [None]
